FAERS Safety Report 21208275 (Version 1)
Quarter: 2022Q3

REPORT INFORMATION
  Report Type: Spontaneous
  Country: US (occurrence: US)
  Receive Date: 20220812
  Receipt Date: 20220812
  Transmission Date: 20221027
  Serious: No
  Sender: FDA-Public Use
  Company Number: US-MYLANLABS-2022M1083780

PATIENT
  Sex: Female
  Weight: 54.43 kg

DRUGS (7)
  1. FENTANYL TRANSDERMAL SYSTEM [Suspect]
     Active Substance: FENTANYL
     Indication: Pain
     Dosage: 100 MICROGRAM, QH (APPLIED EVERY 48 HOURS)
     Route: 062
  2. HYDROCODONE [Concomitant]
     Active Substance: HYDROCODONE
     Indication: Pain
     Dosage: 5 MILLIGRAM, PRN (AS NEEDED ONCE OR TWICE A DAY)
     Route: 065
  3. MELATONIN [Concomitant]
     Active Substance: MELATONIN
     Dosage: UNK
     Route: 065
  4. PROCARDIA [Concomitant]
     Active Substance: NIFEDIPINE
     Indication: Blood pressure abnormal
     Dosage: UNK
     Route: 065
  5. TRICOR [Concomitant]
     Active Substance: FENOFIBRATE
     Indication: Blood pressure measurement
     Dosage: UNK
     Route: 065
  6. TYLENOL [Concomitant]
     Active Substance: ACETAMINOPHEN
     Dosage: UNK
     Route: 065
  7. VALIUM [Concomitant]
     Active Substance: DIAZEPAM
     Indication: Muscle spasms
     Dosage: 2 MILLIGRAM
     Route: 065

REACTIONS (1)
  - Drug screen positive [Unknown]
